FAERS Safety Report 7810621-1 (Version None)
Quarter: 2011Q4

REPORT INFORMATION
  Report Type: 
  Country: None (occurrence: None)
  Receive Date: 20111013
  Receipt Date: 20111004
  Transmission Date: 20120403
  Serious: No
  Sender: FDA-Public Use
  Company Number: US-BIOGENIDEC-2011BI038117

PATIENT
  Age: 43 Year
  Sex: Male

DRUGS (3)
  1. TYSABRI [Suspect]
     Indication: MULTIPLE SCLEROSIS
     Route: 042
     Dates: start: 20110825
  2. BENADRYL [Concomitant]
     Indication: PREMEDICATION
  3. TYLENOL-500 [Concomitant]
     Indication: PREMEDICATION

REACTIONS (1)
  - PRURITUS GENERALISED [None]
